FAERS Safety Report 4778337-6 (Version None)
Quarter: 2005Q3

REPORT INFORMATION
  Report Type: 
  Country: None (occurrence: None)
  Receive Date: 20050923
  Receipt Date: 20050923
  Transmission Date: 20060218
  Serious: Yes (Life-Threatening, Hospitalization)
  Sender: FDA-Public Use
  Company Number: None

PATIENT
  Age: 57 Year
  Sex: Female
  Weight: 76 kg

DRUGS (3)
  1. LOVENOX [Suspect]
     Indication: THROMBOSIS
     Dosage: 40MG DAILY SQ
     Route: 058
     Dates: start: 20050906, end: 20050907
  2. HEPARIN [Suspect]
     Indication: PROPHYLAXIS
     Dosage: WEIGHT BASED DRIP IV DRIP
     Route: 041
     Dates: start: 20050901, end: 20050904
  3. HEPARIN [Suspect]
     Indication: THROMBOSIS
     Dosage: WEIGHT BASED DRIP IV DRIP
     Route: 041
     Dates: start: 20050901, end: 20050904

REACTIONS (3)
  - CONVULSION [None]
  - HAEMORRHAGIC STROKE [None]
  - INFARCTION [None]
